FAERS Safety Report 20233275 (Version 2)
Quarter: 2022Q1

REPORT INFORMATION
  Report Type: Spontaneous
  Country: JP (occurrence: JP)
  Receive Date: 20211227
  Receipt Date: 20220107
  Transmission Date: 20220424
  Serious: Yes (Life-Threatening, Hospitalization)
  Sender: FDA-Public Use
  Company Number: JP-TEVA-2021-JP-1993033

PATIENT
  Age: 32 Year
  Sex: Female

DRUGS (6)
  1. BISOPROLOL [Suspect]
     Active Substance: BISOPROLOL
     Indication: Junctional ectopic tachycardia
     Route: 065
  2. VERAPAMIL [Suspect]
     Active Substance: VERAPAMIL HYDROCHLORIDE
     Indication: Junctional ectopic tachycardia
     Route: 065
  3. ADENOSINE [Suspect]
     Active Substance: ADENOSINE
     Indication: Junctional ectopic tachycardia
     Route: 042
  4. LANDIOLOL [Suspect]
     Active Substance: LANDIOLOL
     Indication: Junctional ectopic tachycardia
     Route: 050
  5. AMIODARONE [Suspect]
     Active Substance: AMIODARONE
     Indication: Junctional ectopic tachycardia
     Route: 050
  6. PILSICAINIDE [Concomitant]
     Active Substance: PILSICAINIDE
     Indication: Junctional ectopic tachycardia
     Route: 042

REACTIONS (2)
  - Drug ineffective [Unknown]
  - Ventricular fibrillation [Recovered/Resolved]
